FAERS Safety Report 8742190 (Version 2)
Quarter: 2013Q1

REPORT INFORMATION
  Report Type: Spontaneous
  Country: US (occurrence: US)
  Receive Date: 20120824
  Receipt Date: 20130305
  Transmission Date: 20140127
  Serious: Yes (Hospitalization, Other)
  Sender: FDA-Public Use
  Company Number: US-BAYER-2012-084819

PATIENT
  Age: 26 Year
  Sex: Female
  Weight: 81.63 kg

DRUGS (5)
  1. YASMIN [Suspect]
     Indication: MENSTRUATION IRREGULAR
     Dosage: UNK
     Dates: start: 200212, end: 200807
  2. YASMIN [Suspect]
     Indication: CONTRACEPTION
  3. OCELLA [Suspect]
     Indication: MENSTRUATION IRREGULAR
     Dosage: UNK
     Dates: start: 200808, end: 201009
  4. ZARAH [Suspect]
     Indication: MENSTRUATION IRREGULAR
     Dosage: UNK
     Dates: start: 201101, end: 201103
  5. IBUPROFEN [Concomitant]
     Dosage: AS NEEDED, PRN
     Route: 048

REACTIONS (11)
  - Gallbladder disorder [None]
  - Biliary dyskinesia [None]
  - Off label use [None]
  - Injury [None]
  - Abdominal pain [None]
  - Emotional distress [None]
  - Anxiety [None]
  - Pain [None]
  - General physical health deterioration [None]
  - Nausea [None]
  - Vomiting [None]
